FAERS Safety Report 22115878 (Version 1)
Quarter: 2023Q1

REPORT INFORMATION
  Report Type: Spontaneous
  Country: US (occurrence: US)
  Receive Date: 20230320
  Receipt Date: 20230320
  Transmission Date: 20230417
  Serious: No
  Sender: FDA-Public Use
  Company Number: US-RIGEL PHARMACEUTICALS, INC.- 2023FOS000284

PATIENT
  Sex: Male
  Weight: 76.644 kg

DRUGS (1)
  1. TAVALISSE [Suspect]
     Active Substance: FOSTAMATINIB
     Indication: Thrombocytopenia
     Dosage: 100 MILLIGRAM, BID
     Route: 048
     Dates: start: 20230117

REACTIONS (6)
  - Haemorrhage [Unknown]
  - Platelet count [Unknown]
  - Fluid retention [Unknown]
  - Peripheral swelling [Unknown]
  - Increased tendency to bruise [Unknown]
  - Off label use [Unknown]

NARRATIVE: CASE EVENT DATE: 20230101
